FAERS Safety Report 22531766 (Version 1)
Quarter: 2023Q2

REPORT INFORMATION
  Report Type: Spontaneous
  Country: US (occurrence: None)
  Receive Date: 20230606
  Receipt Date: 20230606
  Transmission Date: 20230722
  Serious: Yes (Hospitalization)
  Sender: FDA-Public Use
  Company Number: None

PATIENT
  Age: 76 Year
  Sex: Male
  Weight: 108.86 kg

DRUGS (20)
  1. ABIRATERONE [Suspect]
     Active Substance: ABIRATERONE
     Indication: Prostate cancer
     Dosage: FREQUENCY : DAILY;?
     Route: 048
  2. ASPIRIN [Concomitant]
  3. ALBUTEROL [Concomitant]
  4. COENZYME Q10 [Concomitant]
     Active Substance: DIETARY SUPPLEMENT\UBIDECARENONE
  5. DICLOFENAC [Concomitant]
     Active Substance: DICLOFENAC
  6. EZETIMIBE [Concomitant]
     Active Substance: EZETIMIBE
  7. FERROUS SULFATE [Concomitant]
     Active Substance: FERROUS SULFATE
  8. FLONASE [Concomitant]
     Active Substance: FLUTICASONE PROPIONATE
  9. GABAPENTIN [Concomitant]
     Active Substance: GABAPENTIN
  10. HUMULIN N [Concomitant]
     Active Substance: INSULIN HUMAN
  11. LORATADINE [Concomitant]
     Active Substance: LORATADINE
  12. LOSARTAN [Concomitant]
  13. METOLAZONE [Concomitant]
  14. NYSTATIN-TRIAMCINOLONE [Concomitant]
  15. PREDNISONE [Concomitant]
  16. PROVENGE [Concomitant]
     Active Substance: SIPULEUCEL-T
  17. ROSUVASTATIN [Concomitant]
  18. TAMSULOSIN [Concomitant]
  19. VITAMIN D3 [Concomitant]
     Active Substance: CHOLECALCIFEROL
  20. WIXELA INHUB [Concomitant]
     Active Substance: FLUTICASONE PROPIONATE\SALMETEROL XINAFOATE

REACTIONS (4)
  - Pruritus [None]
  - Fatigue [None]
  - Somnolence [None]
  - Feeling abnormal [None]

NARRATIVE: CASE EVENT DATE: 20230515
